FAERS Safety Report 6969676-9 (Version None)
Quarter: 2010Q3

REPORT INFORMATION
  Report Type: 
  Country: None (occurrence: None)
  Receive Date: 20100908
  Receipt Date: 20100830
  Transmission Date: 20110219
  Serious: No
  Sender: FDA-Public Use
  Company Number: US-US-EMD SERONO, INC.-7013265

PATIENT
  Sex: Male
  Weight: 59 kg

DRUGS (4)
  1. REBIF [Suspect]
     Indication: PRODUCT USED FOR UNKNOWN INDICATION
     Route: 058
     Dates: start: 20090909, end: 20100101
  2. REBIF [Suspect]
     Route: 058
     Dates: start: 20100101, end: 20100625
  3. REBIF [Suspect]
     Dates: start: 20100804, end: 20100801
  4. REBIF [Suspect]
     Route: 058
     Dates: start: 20100801

REACTIONS (5)
  - CENTRAL NERVOUS SYSTEM LESION [None]
  - INFLUENZA LIKE ILLNESS [None]
  - INJECTION SITE INJURY [None]
  - LIVER FUNCTION TEST ABNORMAL [None]
  - SINUSITIS [None]
